FAERS Safety Report 4555231-7 (Version None)
Quarter: 2005Q1

REPORT INFORMATION
  Report Type: 
  Country: None (occurrence: None)
  Receive Date: 20050118
  Receipt Date: 20050113
  Transmission Date: 20050727
  Serious: Yes (Death)
  Sender: FDA-Public Use
  Company Number: US-MERCK-0501USA01834

PATIENT
  Sex: Female

DRUGS (2)
  1. VIOXX [Suspect]
     Route: 065
     Dates: start: 19990101
  2. VIOXX [Suspect]
     Route: 065
     Dates: start: 20020501

REACTIONS (1)
  - DEATH [None]
